FAERS Safety Report 25594726 (Version 1)
Quarter: 2025Q3

REPORT INFORMATION
  Report Type: Report from Study
  Country: AE (occurrence: AE)
  Receive Date: 20250723
  Receipt Date: 20250723
  Transmission Date: 20251020
  Serious: Yes (Other)
  Sender: ROCHE
  Company Number: AE-ROCHE-10000337560

PATIENT
  Age: 47 Year
  Sex: Female

DRUGS (2)
  1. ADO-TRASTUZUMAB EMTANSINE [Suspect]
     Active Substance: ADO-TRASTUZUMAB EMTANSINE
     Indication: Product used for unknown indication
     Route: 065
  2. PACLITAXEL [Suspect]
     Active Substance: PACLITAXEL
     Indication: Product used for unknown indication
     Route: 065

REACTIONS (4)
  - Metastases to bone [Unknown]
  - Hepatomegaly [Unknown]
  - Arteriosclerosis [Unknown]
  - Spinal osteoarthritis [Unknown]
